FAERS Safety Report 18390816 (Version 8)
Quarter: 2020Q4

REPORT INFORMATION
  Report Type: Spontaneous
  Country: JP (occurrence: JP)
  Receive Date: 20201016
  Receipt Date: 20201224
  Transmission Date: 20210114
  Serious: Yes (Hospitalization, Other)
  Sender: FDA-Public Use
  Company Number: JP-AMGEN-JPNSP2020148439

PATIENT
  Age: 64 Year
  Sex: Female
  Weight: 63 kg

DRUGS (11)
  1. BLINCYTO [Suspect]
     Active Substance: BLINATUMOMAB
     Dosage: 28 MICROGRAM, QD
     Route: 041
     Dates: start: 20201028, end: 20201028
  2. BLINCYTO [Suspect]
     Active Substance: BLINATUMOMAB
     Dosage: 9 MICROGRAM, QD
     Route: 041
     Dates: start: 20201104, end: 20201105
  3. PREDNISOLONE. [Concomitant]
     Active Substance: PREDNISOLONE
     Dosage: UNK
  4. MEROPENEM. [Concomitant]
     Active Substance: MEROPENEM
     Indication: PYREXIA
     Dosage: 1 GRAM, TID
     Dates: start: 20200909, end: 20200918
  5. BLINCYTO [Suspect]
     Active Substance: BLINATUMOMAB
     Indication: B PRECURSOR TYPE ACUTE LEUKAEMIA
     Dosage: 9 MICROGRAM, QD
     Route: 041
     Dates: start: 20200909, end: 20200915
  6. RYZODEG 70/30 [Concomitant]
     Active Substance: INSULIN ASPART\INSULIN DEGLUDEC
     Indication: TYPE 2 DIABETES MELLITUS
     Dosage: 36 IU INTERNATIONAL UNIT(S), QD
     Dates: start: 20200907, end: 20200924
  7. BLINCYTO [Suspect]
     Active Substance: BLINATUMOMAB
     Dosage: 28 MICROGRAM, QD
     Route: 041
     Dates: start: 20200916, end: 20201006
  8. PREDNISOLONE. [Concomitant]
     Active Substance: PREDNISOLONE
     Dosage: UNK, TAPER
  9. RYZODEG 70/30 [Concomitant]
     Active Substance: INSULIN ASPART\INSULIN DEGLUDEC
     Dosage: 30 IU INTERNATIONAL UNIT(S), QD
     Dates: start: 20200925, end: 20200930
  10. RYZODEG 70/30 [Concomitant]
     Active Substance: INSULIN ASPART\INSULIN DEGLUDEC
     Dosage: 16 IU INTERNATIONAL UNIT(S), QD
     Dates: start: 20201001, end: 20201006
  11. CEFTRIAXONE SODIUM. [Concomitant]
     Active Substance: CEFTRIAXONE SODIUM
     Indication: URINARY TRACT INFECTION
     Dosage: 1 GRAM, BID
     Dates: start: 20201024, end: 20201027

REACTIONS (8)
  - Unevaluable event [Unknown]
  - Thrombosis [Not Recovered/Not Resolved]
  - Abnormal behaviour [Recovering/Resolving]
  - Tremor [Unknown]
  - Hypoaesthesia [Recovering/Resolving]
  - Decreased appetite [Recovered/Resolved]
  - Headache [Recovering/Resolving]
  - Disorientation [Recovered/Resolved]

NARRATIVE: CASE EVENT DATE: 2020
